FAERS Safety Report 7174908-0 (Version None)
Quarter: 2010Q4

REPORT INFORMATION
  Report Type: 
  Country: None (occurrence: None)
  Receive Date: 20101220
  Receipt Date: 20101208
  Transmission Date: 20110411
  Serious: No
  Sender: FDA-Public Use
  Company Number: US-AMGEN-KDL263543

PATIENT

DRUGS (4)
  1. ENBREL [Suspect]
     Indication: RHEUMATOID ARTHRITIS
     Dosage: 50 MG, QWK
     Route: 058
     Dates: start: 20080131, end: 20100624
  2. ENBREL [Suspect]
     Dosage: 50 MG, QWK
     Dates: start: 20101001
  3. GOLIMUMAB [Concomitant]
     Dosage: UNK UNK, QMO
  4. IMURAN [Concomitant]
     Dosage: 50 MG, BID
     Route: 048
     Dates: start: 20080131

REACTIONS (9)
  - ASTHENIA [None]
  - INJECTION SITE HAEMATOMA [None]
  - INJECTION SITE PAIN [None]
  - INJECTION SITE REACTION [None]
  - INJECTION SITE SCAR [None]
  - PAIN [None]
  - RED BLOOD CELL SEDIMENTATION RATE ABNORMAL [None]
  - RED BLOOD CELL SEDIMENTATION RATE INCREASED [None]
  - RHEUMATOID ARTHRITIS [None]
